FAERS Safety Report 16127860 (Version 1)
Quarter: 2019Q1

REPORT INFORMATION
  Report Type: Spontaneous
  Country: US (occurrence: US)
  Receive Date: 20190328
  Receipt Date: 20190328
  Transmission Date: 20190418
  Serious: No
  Sender: FDA-Public Use
  Company Number: US-ALKERMES INC.-ALK-2019-001509

PATIENT
  Age: 44 Year
  Sex: Male
  Weight: 81.63 kg

DRUGS (2)
  1. VIVITROL [Suspect]
     Active Substance: NALTREXONE
     Indication: ALCOHOLISM
     Dosage: 380 MG, QMO
     Route: 030
     Dates: end: 20170407
  2. OTHER THERAPEUTIC PRODUCTS [Concomitant]
     Active Substance: UNSPECIFIED INGREDIENT
     Indication: HYPERSENSITIVITY
     Route: 048

REACTIONS (6)
  - Abnormal behaviour [Unknown]
  - Rhinorrhoea [Unknown]
  - Alcoholism [Not Recovered/Not Resolved]
  - Sinusitis [Unknown]
  - Sneezing [Unknown]
  - Sedation [Unknown]

NARRATIVE: CASE EVENT DATE: 201901
